FAERS Safety Report 8393297-7 (Version None)
Quarter: 2012Q2

REPORT INFORMATION
  Report Type: 
  Country: None (occurrence: None)
  Receive Date: 20120529
  Receipt Date: 20120517
  Transmission Date: 20120825
  Serious: Yes (Hospitalization, Other)
  Sender: FDA-Public Use
  Company Number: US-ELI_LILLY_AND_COMPANY-US201204001145

PATIENT
  Sex: Female

DRUGS (8)
  1. EYE DROPS [Concomitant]
  2. CALTRATE                           /00751519/ [Concomitant]
  3. MAXZIDE [Concomitant]
  4. PRAVASTATIN [Concomitant]
  5. XARELTO [Concomitant]
  6. NEXIUM [Concomitant]
  7. FORTEO [Suspect]
     Indication: OSTEOPOROSIS
     Dosage: 20 UG, QD
     Route: 065
     Dates: start: 20120209
  8. FORTEO [Suspect]
     Dosage: 20 UG, QD
     Route: 065

REACTIONS (6)
  - ARTHRITIS [None]
  - ROTATOR CUFF SYNDROME [None]
  - GLAUCOMA [None]
  - CONSTIPATION [None]
  - MUSCLE SPASMS [None]
  - MACULAR DEGENERATION [None]
